FAERS Safety Report 20368034 (Version 1)
Quarter: 2022Q1

REPORT INFORMATION
  Report Type: Spontaneous
  Country: FR (occurrence: FR)
  Receive Date: 20220124
  Receipt Date: 20220124
  Transmission Date: 20220423
  Serious: Yes (Other)
  Sender: FDA-Public Use
  Company Number: FR-AMGEN-FRASP2022008218

PATIENT
  Age: 74 Year
  Sex: Female

DRUGS (1)
  1. PROLIA [Suspect]
     Active Substance: DENOSUMAB
     Indication: Osteoporosis
     Dosage: 1/6 MONTHS
     Route: 058
     Dates: start: 202111

REACTIONS (1)
  - Thalamic infarction [Not Recovered/Not Resolved]

NARRATIVE: CASE EVENT DATE: 20211130
